FAERS Safety Report 10265082 (Version 1)
Quarter: 2014Q2

REPORT INFORMATION
  Report Type: Spontaneous
  Country: US (occurrence: None)
  Receive Date: 20140625
  Receipt Date: 20140625
  Transmission Date: 20141212
  Serious: Yes (Hospitalization)
  Sender: FDA-Public Use
  Company Number: None

PATIENT
  Age: 59 Year
  Sex: Male
  Weight: 84.6 kg

DRUGS (17)
  1. CISPLATIN [Suspect]
  2. ACETAMINOPHEN [Concomitant]
  3. BMX [Concomitant]
  4. CEFEPIME HCI [Concomitant]
  5. ENOXAPARIN [Concomitant]
  6. FAMOTIDINE [Concomitant]
  7. FENTANYL [Concomitant]
  8. FLUCONAZOLE [Concomitant]
  9. FLUTICASONE [Concomitant]
  10. HYDROMORPHONE [Concomitant]
  11. METRONIDAZOLE [Concomitant]
  12. ONDANSETRON [Concomitant]
  13. OXYCODONE [Concomitant]
  14. PROMETHAZINE [Concomitant]
  15. SENNOSIDES [Concomitant]
  16. SIMVASTATIN [Concomitant]
  17. SODIUM CHLORIDE IV [Concomitant]

REACTIONS (21)
  - Leukopenia [None]
  - Neutropenia [None]
  - Osteoradionecrosis [None]
  - Mucosal inflammation [None]
  - Treatment failure [None]
  - Pain [None]
  - Swelling [None]
  - Trismus [None]
  - Parotitis [None]
  - Muscle abscess [None]
  - Streptococcus test positive [None]
  - Secretion discharge [None]
  - Mental status changes [None]
  - Hypoxia [None]
  - Unresponsive to stimuli [None]
  - Wound decomposition [None]
  - Fistula [None]
  - Impaired healing [None]
  - Jaw disorder [None]
  - Skin graft [None]
  - Wound dehiscence [None]
